FAERS Safety Report 8647257 (Version 2)
Quarter: 2012Q4

REPORT INFORMATION
  Report Type: 
  Country: FR (occurrence: FR)
  Receive Date: 20120703
  Receipt Date: 20121017
  Transmission Date: 20130627
  Serious: Yes (Life-Threatening)
  Sender: FDA-Public Use
  Company Number: FR-SANOFI-AVENTIS-2012SA045407

PATIENT
  Age: 22 Year
  Sex: Female

DRUGS (19)
  1. TAXOTERE [Suspect]
     Indication: SQUAMOUS CELL CARCINOMA
     Route: 042
     Dates: start: 20120312, end: 20120312
  2. CISPLATIN [Suspect]
     Indication: SQUAMOUS CELL CARCINOMA
     Route: 042
     Dates: start: 20120312, end: 20120312
  3. FLUOROURACIL [Suspect]
     Indication: SQUAMOUS CELL CARCINOMA
     Route: 042
     Dates: start: 20120312, end: 20120417
  4. LYRICA [Concomitant]
     Route: 048
     Dates: start: 20120313, end: 20120316
  5. EMEND [Concomitant]
     Route: 048
     Dates: start: 20120312, end: 20120312
  6. EMEND [Concomitant]
     Route: 048
     Dates: start: 20120313, end: 20120314
  7. ZOPHREN [Concomitant]
     Route: 042
     Dates: start: 20120312, end: 20120312
  8. ACTISKENAN [Concomitant]
     Indication: PAIN
  9. LEVOTHYROX [Concomitant]
  10. SKENAN [Concomitant]
     Route: 048
  11. CEFAZOLIN [Concomitant]
     Route: 042
     Dates: start: 20120315, end: 20120315
  12. DAFALGAN [Concomitant]
     Indication: PAIN
     Route: 048
  13. XANAX [Concomitant]
     Route: 048
  14. ORAMORPH [Concomitant]
     Route: 048
     Dates: start: 20120315, end: 20120315
  15. SOLUMEDROL [Concomitant]
     Route: 042
     Dates: start: 20120312, end: 20120314
  16. SOLUPRED [Concomitant]
     Route: 048
     Dates: start: 20120312, end: 20120314
  17. PRIMPERAN [Concomitant]
     Route: 042
     Dates: start: 20120312, end: 20120312
  18. SPASFON [Concomitant]
     Route: 042
     Dates: start: 20120317, end: 20120317
  19. FORLAX [Concomitant]
     Route: 048
     Dates: start: 20120312, end: 20120312

REACTIONS (1)
  - Posterior reversible encephalopathy syndrome [Recovered/Resolved]
